FAERS Safety Report 24006822 (Version 1)
Quarter: 2024Q2

REPORT INFORMATION
  Report Type: Spontaneous
  Country: US (occurrence: None)
  Receive Date: 20240624
  Receipt Date: 20240624
  Transmission Date: 20240716
  Serious: No
  Sender: FDA-Public Use
  Company Number: None

PATIENT
  Age: 46 Year
  Sex: Female

DRUGS (1)
  1. BOTOX [Suspect]
     Active Substance: BOTULINUM TOXIN TYPE A\ONABOTULINUMTOXINA
     Indication: Torticollis
     Dosage: 2 IU INTERNATIONAL UNIT INTRAMUSCULAR
     Route: 030
     Dates: start: 20240619, end: 20240619

REACTIONS (7)
  - Injection site pain [None]
  - Injection site pain [None]
  - Muscular weakness [None]
  - Dysphagia [None]
  - Fatigue [None]
  - Rhinorrhoea [None]
  - Head discomfort [None]

NARRATIVE: CASE EVENT DATE: 20240620
